FAERS Safety Report 12865220 (Version 1)
Quarter: 2016Q4

REPORT INFORMATION
  Report Type: Spontaneous
  Country: US (occurrence: US)
  Receive Date: 20161020
  Receipt Date: 20161020
  Transmission Date: 20170207
  Serious: Yes (Life-Threatening, Hospitalization)
  Sender: FDA-Public Use
  Company Number: None

PATIENT
  Age: 65 Year
  Sex: Female
  Weight: 72.64 kg

DRUGS (9)
  1. VITAMIN B12 [Concomitant]
     Active Substance: CYANOCOBALAMIN
  2. NEXIUM [Concomitant]
     Active Substance: ESOMEPRAZOLE MAGNESIUM
  3. COQ10 [Concomitant]
     Active Substance: UBIDECARENONE
  4. MELATONIN [Concomitant]
     Active Substance: MELATONIN
  5. HCTZ HYDROCHLOROTHIAZIDE EXCELLIUM [Suspect]
     Active Substance: HYDROCHLOROTHIAZIDE
     Indication: HYPERTENSION
     Dosage: FOR NDC NUMBER - LISTED DEA# BE6824317 AND FOR LOT # - LISTED LD415? + NONE SEEN?          QUANTITY:I MAO/QUA;?
     Route: 048
     Dates: start: 20160108, end: 20160510
  6. VITAMIN E [Concomitant]
     Active Substance: .ALPHA.-TOCOPHEROL
  7. TRAMADOL. [Concomitant]
     Active Substance: TRAMADOL
  8. METOPROLOL ER [Concomitant]
     Active Substance: METOPROLOL SUCCINATE
  9. XANAX [Concomitant]
     Active Substance: ALPRAZOLAM

REACTIONS (4)
  - Chest pain [None]
  - Hyperhidrosis [None]
  - Tachycardia [None]
  - Asthenia [None]

NARRATIVE: CASE EVENT DATE: 20160901
